FAERS Safety Report 10105300 (Version 1)
Quarter: 2014Q2

REPORT INFORMATION
  Report Type: Spontaneous
  Country: US (occurrence: US)
  Receive Date: 20140424
  Receipt Date: 20140424
  Transmission Date: 20141212
  Serious: No
  Sender: FDA-Public Use
  Company Number: US-TAKEDA-2014TUS003113

PATIENT
  Age: 30 Year
  Sex: Male

DRUGS (5)
  1. FEBUXOSTAT [Suspect]
     Indication: GOUT
  2. COLCHICINE [Suspect]
     Indication: GOUT
  3. ALLOPURINOL [Concomitant]
  4. CORTICOSTEROIDS [Concomitant]
  5. NONSTEROIDAL ANTI-INFLAMMATORY DRUGS [Concomitant]

REACTIONS (1)
  - Drug ineffective [Recovered/Resolved]
